FAERS Safety Report 24286085 (Version 1)
Quarter: 2024Q3

REPORT INFORMATION
  Report Type: Report from Study
  Country: US (occurrence: US)
  Receive Date: 20240905
  Receipt Date: 20240905
  Transmission Date: 20241016
  Serious: Yes (Disabling)
  Sender: ROCHE
  Company Number: US-ROCHE-10000028162

PATIENT
  Age: 66 Year
  Sex: Female
  Weight: 103.42 kg

DRUGS (5)
  1. ACTEMRA ACTPEN [Suspect]
     Active Substance: TOCILIZUMAB
     Indication: Rheumatoid arthritis
     Dosage: DATES OF RECENT INFUSIONS PRIOR TO AE: 17/JUN/2024, 24/JUN/2024, 01/JUL/2024
     Route: 058
     Dates: start: 20240610
  2. ACTEMRA ACTPEN [Suspect]
     Active Substance: TOCILIZUMAB
     Indication: Fibromyalgia
     Route: 058
     Dates: start: 20240509
  3. PREDNISONE [Concomitant]
     Active Substance: PREDNISONE
     Route: 048
  4. BENADRYL ALLERGY [Concomitant]
     Active Substance: DIPHENHYDRAMINE HYDROCHLORIDE
     Route: 048
  5. OXYGEN [Concomitant]
     Active Substance: OXYGEN
     Route: 045

REACTIONS (4)
  - Hypersensitivity [Unknown]
  - Swelling face [Recovered/Resolved]
  - Skin disorder [Unknown]
  - Dyspnoea [Recovered/Resolved]

NARRATIVE: CASE EVENT DATE: 20240708
